FAERS Safety Report 9625038 (Version 1)
Quarter: 2013Q4

REPORT INFORMATION
  Report Type: Spontaneous
  Country: FR (occurrence: FR)
  Receive Date: 20131016
  Receipt Date: 20131016
  Transmission Date: 20140711
  Serious: Yes (Life-Threatening, Hospitalization, Other)
  Sender: FDA-Public Use
  Company Number: FR-BRISTOL-MYERS SQUIBB COMPANY-19508985

PATIENT
  Age: 67 Year
  Sex: Male

DRUGS (5)
  1. ONGLYZA TABS [Suspect]
     Indication: DIABETES MELLITUS
  2. TENORMINE [Concomitant]
  3. GLUCOPHAGE [Concomitant]
  4. KARDEGIC [Concomitant]
  5. ELISOR [Concomitant]

REACTIONS (2)
  - Pancreatitis [Recovering/Resolving]
  - Cholelithiasis [Unknown]
